FAERS Safety Report 9312141 (Version 1)
Quarter: 2013Q2

REPORT INFORMATION
  Report Type: Report from Study
  Country: CA (occurrence: CA)
  Receive Date: 20130528
  Receipt Date: 20130528
  Transmission Date: 20140414
  Serious: Yes (Other)
  Sender: FDA-Public Use
  Company Number: CA-JNJFOC-20130516446

PATIENT
  Sex: Male
  Weight: 135.2 kg

DRUGS (18)
  1. REMICADE [Suspect]
     Indication: COLITIS ULCERATIVE
     Route: 042
     Dates: start: 20100715
  2. ELAVIL [Concomitant]
     Route: 065
  3. AZATHIOPRINE [Concomitant]
     Route: 065
  4. HYDROMORPHONE [Concomitant]
     Route: 065
  5. HYDROMORPH CONTIN [Concomitant]
     Route: 065
  6. OXAZEPAM [Concomitant]
     Route: 065
  7. TEMAZEPAM [Concomitant]
     Route: 065
  8. CITALOPRAM [Concomitant]
     Route: 065
  9. LOPERMIDE [Concomitant]
     Route: 065
  10. OMEPRAZOLE [Concomitant]
     Route: 065
  11. RANITIDINE [Concomitant]
     Route: 065
  12. RESPERIDONE [Concomitant]
     Route: 065
  13. TETRACYCLINE [Concomitant]
     Route: 065
  14. IMIPRAMINE [Concomitant]
     Route: 065
  15. ASACOL [Concomitant]
     Route: 065
  16. GABAPENTIN [Concomitant]
     Route: 065
  17. CALCIUM [Concomitant]
     Route: 065
  18. VITAMIN D [Concomitant]
     Route: 065

REACTIONS (6)
  - Hepatic steatosis [Not Recovered/Not Resolved]
  - Cholelithiasis [Not Recovered/Not Resolved]
  - Local swelling [Not Recovered/Not Resolved]
  - Skin discolouration [Not Recovered/Not Resolved]
  - Obesity [Not Recovered/Not Resolved]
  - Furuncle [Not Recovered/Not Resolved]
